FAERS Safety Report 7348843-9 (Version None)
Quarter: 2011Q1

REPORT INFORMATION
  Report Type: 
  Country: None (occurrence: None)
  Receive Date: 20110314
  Receipt Date: 20110225
  Transmission Date: 20110831
  Serious: Yes (Hospitalization)
  Sender: FDA-Public Use
  Company Number: US-ABBOTT-11P-163-0699946-00

PATIENT
  Sex: Male
  Weight: 86.26 kg

DRUGS (4)
  1. HUMIRA [Suspect]
     Indication: ANKYLOSING SPONDYLITIS
     Route: 058
     Dates: start: 20080101
  2. HUMIRA [Suspect]
     Indication: ANKYLOSING SPONDYLITIS
     Route: 058
     Dates: start: 20040101
  3. PERCOCET [Concomitant]
     Indication: PAIN
     Dosage: 10/325MG AS NEEDED
  4. OTC MAGNESIUM OXIDE [Concomitant]
     Indication: NEPHROLITHIASIS
     Dosage: PILLS

REACTIONS (4)
  - NEPHROLITHIASIS [None]
  - INJECTION SITE PAIN [None]
  - BIPOLAR DISORDER [None]
  - GALLBLADDER DISORDER [None]
